FAERS Safety Report 7943459-5 (Version None)
Quarter: 2011Q4

REPORT INFORMATION
  Report Type: 
  Country: None (occurrence: None)
  Receive Date: 20111128
  Receipt Date: 20111124
  Transmission Date: 20120403
  Serious: Yes (Death)
  Sender: FDA-Public Use
  Company Number: DE-B.I. PHARMACEUTICALS,INC./RIDGEFIELD-2011-DE-06546DE

PATIENT
  Age: 83 Year
  Sex: Female

DRUGS (2)
  1. CITALOPRAM HYDROBROMIDE [Concomitant]
     Dates: start: 20110901
  2. PRADAXA [Suspect]
     Indication: ATRIAL FIBRILLATION
     Dosage: 220 MG
     Dates: start: 20110901

REACTIONS (1)
  - DEATH [None]
